FAERS Safety Report 25345167 (Version 1)
Quarter: 2025Q2

REPORT INFORMATION
  Report Type: Report from Study
  Country: JP (occurrence: JP)
  Receive Date: 20250522
  Receipt Date: 20250522
  Transmission Date: 20250716
  Serious: Yes (Death)
  Sender: ROCHE
  Company Number: JP-ROCHE-10000286736

PATIENT
  Age: 73 Year
  Sex: Female

DRUGS (3)
  1. TRASTUZUMAB [Suspect]
     Active Substance: TRASTUZUMAB
     Indication: HER2 positive gastric cancer
     Route: 042
  2. INVESTIGATIONAL BIOSIMILARS [Suspect]
     Active Substance: INVESTIGATIONAL BIOSIMILARS
     Indication: HER2 positive gastric cancer
     Route: 042
  3. INVESTIGATIONAL BIOSIMILARS [Suspect]
     Active Substance: INVESTIGATIONAL BIOSIMILARS
     Dosage: THEREAFTER
     Route: 042

REACTIONS (1)
  - Myocardial infarction [Fatal]
